FAERS Safety Report 25651593 (Version 1)
Quarter: 2025Q3

REPORT INFORMATION
  Report Type: Spontaneous
  Country: US (occurrence: US)
  Receive Date: 20250806
  Receipt Date: 20250806
  Transmission Date: 20251021
  Serious: Yes (Other)
  Sender: SANDOZ
  Company Number: US-002147023-NVSC2025US094117

PATIENT
  Age: 67 Year
  Sex: Female
  Weight: 74.7 kg

DRUGS (10)
  1. ANASTROZOLE [Suspect]
     Active Substance: ANASTROZOLE
     Indication: Product used for unknown indication
     Route: 048
  2. KISQALI [Suspect]
     Active Substance: RIBOCICLIB SUCCINATE
     Indication: Breast cancer metastatic
     Dosage: 200 MG, QD (TAKE 200 MG BY MOUTH IN  THE MORNING. TAKE FOR 21 DAYS ON AND 7  DAYS OFF)
     Route: 048
     Dates: start: 20250331, end: 20250509
  3. KISQALI [Suspect]
     Active Substance: RIBOCICLIB SUCCINATE
     Indication: Breast cancer
     Dosage: 400 MG, QD (TAKE 400 MG BY MOUTH IN  THE MORNING. TAKE FOR 21 DAYS ON AND 7  DAYS OFF)
     Route: 048
     Dates: end: 20250721
  4. CALCIUM\VITAMIN D [Concomitant]
     Active Substance: CALCIUM\VITAMIN D
     Indication: Metastases to bone
     Route: 065
  5. Carmol [Concomitant]
     Indication: Product used for unknown indication
     Dosage: UNK (20 % CREAM) (TOPICALLY NIGHTLY  APPLY TOPICALLY 3 (THREE) TIMES A DAY AS  NEEDED)
     Route: 065
  6. NARCAN [Concomitant]
     Active Substance: NALOXONE HYDROCHLORIDE
     Indication: Dyspnoea
     Route: 045
  7. RESTASIS [Concomitant]
     Active Substance: CYCLOSPORINE
     Indication: Product used for unknown indication
     Dosage: 1 DRP, BID (0.05% OPHTHALMIC EMULSION)
     Route: 065
  8. ROXICODONE [Concomitant]
     Active Substance: OXYCODONE HYDROCHLORIDE
     Indication: Cancer pain
     Route: 048
  9. TYLENOL [Concomitant]
     Active Substance: ACETAMINOPHEN
     Indication: Product used for unknown indication
     Dosage: 500 MG, QD (BY MOUTH DAILY AS NEEDED)
     Route: 048
  10. XGEVA [Concomitant]
     Active Substance: DENOSUMAB
     Indication: Metastases to bone
     Route: 065

REACTIONS (19)
  - Hepatic enzyme increased [Not Recovered/Not Resolved]
  - Neutropenia [Unknown]
  - Normocytic anaemia [Recovering/Resolving]
  - Blood creatinine increased [Recovering/Resolving]
  - Blood chloride increased [Unknown]
  - Carbon dioxide decreased [Unknown]
  - Anion gap decreased [Unknown]
  - Blood urea increased [Unknown]
  - Blood urea nitrogen/creatinine ratio decreased [Unknown]
  - Alanine aminotransferase increased [Unknown]
  - Aspartate aminotransferase increased [Unknown]
  - Glomerular filtration rate decreased [Unknown]
  - Haemoglobin decreased [Unknown]
  - Haematocrit decreased [Unknown]
  - Blood pressure abnormal [Unknown]
  - Eastern Cooperative Oncology Group performance status abnormal [Unknown]
  - Diarrhoea [Unknown]
  - Vomiting [Unknown]
  - Nausea [Unknown]

NARRATIVE: CASE EVENT DATE: 20250509
